FAERS Safety Report 19362764 (Version 1)
Quarter: 2021Q2

REPORT INFORMATION
  Report Type: Spontaneous
  Country: US (occurrence: US)
  Receive Date: 20210603
  Receipt Date: 20210603
  Transmission Date: 20210717
  Serious: Yes (Hospitalization, Other)
  Sender: FDA-Public Use
  Company Number: US-AUROBINDO-AUR-APL-2021-022413

PATIENT
  Age: 63 Year
  Sex: Male

DRUGS (1)
  1. EPTIFIBATIDE INJECTION [Suspect]
     Active Substance: EPTIFIBATIDE
     Indication: PRODUCT USED FOR UNKNOWN INDICATION
     Dosage: UNK (18 HOURS)
     Route: 065

REACTIONS (2)
  - Coronary artery thrombosis [Unknown]
  - Thrombocytopenia [Unknown]
